FAERS Safety Report 21338121 (Version 1)
Quarter: 2022Q3

REPORT INFORMATION
  Report Type: Spontaneous
  Country: US (occurrence: US)
  Receive Date: 20220915
  Receipt Date: 20220915
  Transmission Date: 20221026
  Serious: No
  Sender: FDA-Public Use
  Company Number: US-PFIZER INC-202201156832

PATIENT
  Sex: Female
  Weight: 45.351 kg

DRUGS (1)
  1. PREMARIN [Suspect]
     Active Substance: ESTROGENS, CONJUGATED
     Dosage: 0.45 MG WEANED TO 5 DAYS A WEEK

REACTIONS (2)
  - Hypotension [Unknown]
  - Intentional product use issue [Unknown]
